FAERS Safety Report 9593009 (Version 1)
Quarter: 2013Q4

REPORT INFORMATION
  Report Type: Spontaneous
  Country: IT (occurrence: IT)
  Receive Date: 20131004
  Receipt Date: 20131004
  Transmission Date: 20140711
  Serious: Yes (Other)
  Sender: FDA-Public Use
  Company Number: IT-AMGEN-ITASP2013068714

PATIENT
  Age: 75 Year
  Sex: Male
  Weight: 75 kg

DRUGS (2)
  1. NPLATE [Suspect]
     Indication: IMMUNE THROMBOCYTOPENIC PURPURA
     Dosage: 1 MUG/KG, QWK
     Route: 058
     Dates: start: 20130730, end: 20130917
  2. LAMIVUDINE [Concomitant]
     Indication: CHRONIC HEPATITIS B
     Dosage: 150 MG, UNK
     Route: 048

REACTIONS (1)
  - Hypertransaminasaemia [Unknown]
